FAERS Safety Report 6252143-8 (Version None)
Quarter: 2009Q2

REPORT INFORMATION
  Report Type: 
  Country: None (occurrence: None)
  Receive Date: 20090630
  Receipt Date: 20070709
  Transmission Date: 20091009
  Serious: Yes (Hospitalization)
  Sender: FDA-Public Use
  Company Number: US-ROCHE-639423

PATIENT
  Sex: Female

DRUGS (17)
  1. ENFUVIRTIDE [Suspect]
     Indication: HIV INFECTION
     Route: 065
     Dates: start: 20060329, end: 20080128
  2. NORVIR [Concomitant]
     Dates: start: 20050119, end: 20070301
  3. NORVIR [Concomitant]
     Dates: end: 20080814
  4. ZIAGEN [Concomitant]
     Dates: start: 20050119, end: 20070301
  5. ZIAGEN [Concomitant]
     Dates: start: 20070509, end: 20070525
  6. EPIVIR [Concomitant]
     Dosage: FREQ: QD
     Dates: start: 20051012, end: 20070301
  7. EPIVIR [Concomitant]
     Dosage: FREQ: QD
     Dates: start: 20070509, end: 20070525
  8. PREZISTA [Concomitant]
     Dates: start: 20060328, end: 20060920
  9. PREZISTA [Concomitant]
     Dates: start: 20060920, end: 20080814
  10. TRIZIVIR [Concomitant]
     Dates: start: 20070301, end: 20070509
  11. TRIZIVIR [Concomitant]
     Dates: start: 20071227, end: 20080814
  12. BACTRIM [Concomitant]
     Dosage: FREQ: QD
     Dates: start: 20050103, end: 20080814
  13. ZITHROMAX [Concomitant]
     Dates: start: 20050103, end: 20080326
  14. ISENTRESS [Concomitant]
     Dates: start: 20071227, end: 20080814
  15. DOXYCYCLINE [Concomitant]
     Dates: start: 20070405, end: 20070503
  16. DOXYCYCLINE [Concomitant]
     Dates: start: 20080221, end: 20080303
  17. FLUCONAZOLE [Concomitant]
     Dosage: FREQ: QD
     Dates: start: 20070405, end: 20070415

REACTIONS (1)
  - PROGRESSIVE MULTIFOCAL LEUKOENCEPHALOPATHY [None]
